FAERS Safety Report 23066266 (Version 1)
Quarter: 2023Q4

REPORT INFORMATION
  Report Type: Spontaneous
  Country: GB (occurrence: GB)
  Receive Date: 20231015
  Receipt Date: 20231015
  Transmission Date: 20240110
  Serious: Yes (Disabling, Other)
  Sender: FDA-Public Use
  Company Number: GB-MHRA-MED-202310051533320640-ZGLFV

PATIENT
  Sex: Female

DRUGS (1)
  1. MIRTAZAPINE [Suspect]
     Active Substance: MIRTAZAPINE
     Indication: Borderline personality disorder
     Dosage: 30 MILLIGRAM, ONCE A DAY (AT NIGHT)
     Route: 065

REACTIONS (5)
  - Amnesia [Not Recovered/Not Resolved]
  - Post-traumatic neck syndrome [Unknown]
  - Head discomfort [Unknown]
  - Muscle spasms [Unknown]
  - Headache [Unknown]
